FAERS Safety Report 14278902 (Version 2)
Quarter: 2017Q4

REPORT INFORMATION
  Report Type: Report from Study
  Country: US (occurrence: US)
  Receive Date: 20171212
  Receipt Date: 20171219
  Transmission Date: 20180321
  Serious: Yes (Other)
  Sender: FDA-Public Use
  Company Number: US-PFIZER INC-2017526237

PATIENT
  Age: 15 Week

DRUGS (9)
  1. FUROSEMIDE. [Suspect]
     Active Substance: FUROSEMIDE
     Dosage: 3 MG/KG, DAILY
  2. PHOSPHORUS [Concomitant]
     Active Substance: PHOSPHORUS
     Dosage: 93 MG/KG, DAILY
  3. FUROSEMIDE. [Suspect]
     Active Substance: FUROSEMIDE
     Indication: COR PULMONALE
     Dosage: 3.2 MG/KG, DAILY
  4. CALCIUM [Concomitant]
     Active Substance: CALCIUM
     Dosage: 121 MG/KG, DAILY
  5. CALCIUM [Concomitant]
     Active Substance: CALCIUM
     Dosage: 185 MG/KG, DAILY
  6. MAGNESIUM [Concomitant]
     Active Substance: MAGNESIUM
     Dosage: UNK
  7. PHOSPHORUS [Concomitant]
     Active Substance: PHOSPHORUS
     Dosage: 89 MG/KG, DAILY
  8. VITAMIN D /00107901/ [Concomitant]
     Active Substance: ERGOCALCIFEROL
     Dosage: 688 IU, DAILY
  9. VITAMIN D /00107901/ [Concomitant]
     Active Substance: ERGOCALCIFEROL
     Dosage: 525 IU, DAILY

REACTIONS (5)
  - Cholelithiasis [Unknown]
  - Hypercalciuria [Unknown]
  - Hyperparathyroidism secondary [Unknown]
  - Nephrocalcinosis [Unknown]
  - Osteopenia [Unknown]
